FAERS Safety Report 22236246 (Version 2)
Quarter: 2023Q2

REPORT INFORMATION
  Report Type: Spontaneous
  Country: HR (occurrence: HR)
  Receive Date: 20230420
  Receipt Date: 20230505
  Transmission Date: 20230721
  Serious: Yes (Hospitalization, Other)
  Sender: FDA-Public Use
  Company Number: HR-TEVA-2023-HR-2877867

PATIENT
  Age: 68 Year
  Sex: Male

DRUGS (4)
  1. SUNITINIB [Suspect]
     Active Substance: SUNITINIB
     Indication: Metastatic renal cell carcinoma
     Route: 065
  2. NIVOLUMAB [Suspect]
     Active Substance: NIVOLUMAB
     Indication: Metastatic renal cell carcinoma
     Dosage: EVERY TWO WEEKS
     Route: 065
  3. DEXAMETHASONE [Concomitant]
     Active Substance: DEXAMETHASONE
     Indication: Metastatic renal cell carcinoma
     Dosage: SCHEDULED AS 8+8MG DAILY
     Route: 048
  4. DEXAMETHASONE [Concomitant]
     Active Substance: DEXAMETHASONE
     Dosage: REDUCED TO 4+4MG DAILY
     Route: 065

REACTIONS (7)
  - Immune-mediated hepatitis [Recovering/Resolving]
  - Immune-mediated renal disorder [Recovering/Resolving]
  - Immune-mediated myositis [Recovering/Resolving]
  - Vitiligo [Not Recovered/Not Resolved]
  - Immune-mediated hypothyroidism [Not Recovered/Not Resolved]
  - Immune-mediated adverse reaction [Unknown]
  - Drug ineffective [Unknown]
